FAERS Safety Report 4704742-X (Version None)
Quarter: 2005Q2

REPORT INFORMATION
  Report Type: 
  Country: None (occurrence: None)
  Receive Date: 20050630
  Receipt Date: 20050617
  Transmission Date: 20051028
  Serious: Yes (Death, Hospitalization, Other)
  Sender: FDA-Public Use
  Company Number: 2005082146

PATIENT
  Sex: Female

DRUGS (2)
  1. CELEBREX [Suspect]
     Indication: ILL-DEFINED DISORDER
  2. METHOTREXATE [Suspect]
     Indication: ILL-DEFINED DISORDER

REACTIONS (2)
  - GASTRIC ULCER PERFORATION [None]
  - MYOCARDIAL INFARCTION [None]
